FAERS Safety Report 15814221 (Version 1)
Quarter: 2019Q1

REPORT INFORMATION
  Report Type: Spontaneous
  Country: US (occurrence: US)
  Receive Date: 20190111
  Receipt Date: 20190111
  Transmission Date: 20190417
  Serious: No
  Sender: FDA-Public Use
  Company Number: US-JAZZ-2018-US-012817

PATIENT
  Age: 46 Year
  Sex: Female

DRUGS (4)
  1. BUPIVACAINE. [Suspect]
     Active Substance: BUPIVACAINE
     Indication: PAIN
     Dosage: UNK MG, QH
     Route: 037
     Dates: end: 201808
  2. BUPIVACAINE. [Suspect]
     Active Substance: BUPIVACAINE
     Indication: BACK PAIN
  3. PRIALT [Suspect]
     Active Substance: ZICONOTIDE ACETATE
     Indication: BACK PAIN
  4. PRIALT [Suspect]
     Active Substance: ZICONOTIDE ACETATE
     Indication: PAIN
     Dosage: UNK ?G, QH
     Route: 037
     Dates: end: 201808

REACTIONS (5)
  - Drug ineffective [Unknown]
  - Discomfort [Unknown]
  - Back pain [Unknown]
  - Inflammation [Unknown]
  - Device issue [Unknown]

NARRATIVE: CASE EVENT DATE: 20180419
